FAERS Safety Report 12569564 (Version 2)
Quarter: 2016Q3

REPORT INFORMATION
  Report Type: Spontaneous
  Country: US (occurrence: US)
  Receive Date: 20160719
  Receipt Date: 20160805
  Transmission Date: 20161109
  Serious: Yes (Other)
  Sender: FDA-Public Use
  Company Number: US-BAYER-2016-135537

PATIENT
  Age: 53 Year
  Sex: Male

DRUGS (3)
  1. MULTIVITAMINS [Concomitant]
     Active Substance: VITAMINS
     Dosage: UNK
  2. LEVITRA [Suspect]
     Active Substance: VARDENAFIL HYDROCHLORIDE TRIHYDRATE
     Indication: ERECTILE DYSFUNCTION
     Dosage: 10 MG, UNK
     Route: 048
     Dates: start: 20160701, end: 20160701
  3. PROPYLTHIOURCL [Concomitant]
     Dosage: UNK

REACTIONS (3)
  - Product use issue [None]
  - Palpitations [Recovered/Resolved]
  - Feeling hot [None]

NARRATIVE: CASE EVENT DATE: 20160701
